FAERS Safety Report 4541375-2 (Version None)
Quarter: 2004Q4

REPORT INFORMATION
  Report Type: 
  Country: None (occurrence: None)
  Receive Date: 20041227
  Receipt Date: 20041214
  Transmission Date: 20050328
  Serious: No
  Sender: FDA-Public Use
  Company Number: 04H-161-0283792-00

PATIENT

DRUGS (4)
  1. MIDAZOLAM HYDROCHLORIDE [Suspect]
     Indication: SEDATION
     Dosage: 2 MG, O NCE AS INITIAL BOLUS, INTRAVENOUS
     Route: 042
  2. ATROPINE [Concomitant]
  3. LIDOCAINE [Concomitant]
  4. LIDOCAINE [Concomitant]

REACTIONS (1)
  - ARRHYTHMIA [None]
